FAERS Safety Report 7319778-2 (Version None)
Quarter: 2011Q1

REPORT INFORMATION
  Report Type: 
  Country: None (occurrence: None)
  Receive Date: 20110216
  Receipt Date: 20110204
  Transmission Date: 20110831
  Serious: Yes (Death, Life-Threatening, Hospitalization, Other)
  Sender: FDA-Public Use
  Company Number: 2007-02507

PATIENT
  Age: 64 Year
  Sex: Male
  Weight: 63 kg

DRUGS (26)
  1. LEVOFLOXACIN [Concomitant]
  2. ALBUMIN TANNATE (ALBUMIN TANNATE) [Concomitant]
  3. DEXAMETHASONE (DEXAMETHASDONE) [Concomitant]
  4. ALENDRONATE SODIUM (ALENDRONATE SODIUM) [Concomitant]
  5. NEUTROGIN (LENOGRASTIM) [Concomitant]
  6. FAMOTIDINE [Concomitant]
  7. VELCADE [Suspect]
     Indication: MULTIPLE MYELOMA
     Dosage: 1.9,1.5, 1.3  MG, INTRAVENOUS
     Route: 042
     Dates: start: 20070601, end: 20070820
  8. VELCADE [Suspect]
     Indication: MULTIPLE MYELOMA
     Dosage: 1.9,1.5, 1.3  MG, INTRAVENOUS
     Route: 042
     Dates: start: 20090122, end: 20090225
  9. VELCADE [Suspect]
     Indication: MULTIPLE MYELOMA
     Dosage: 1.9,1.5, 1.3  MG, INTRAVENOUS
     Route: 042
     Dates: start: 20070907, end: 20081225
  10. LASIX [Suspect]
     Indication: GENERALISED OEDEMA
     Dosage: 40 MG, ORAL
     Route: 048
     Dates: start: 20070605, end: 20070628
  11. NORVASC [Concomitant]
  12. MAGNESIUM OXIDSE (MAGNESIUM OXIDE) [Concomitant]
  13. KYTRIL [Concomitant]
  14. MEYLON (SODIUIM BICARBONATE) [Concomitant]
  15. GASTER (FAMOTIDINE) [Concomitant]
  16. BIOFERMIN (STREPTOCOCCUS FAECALIS, LACTOBACILLUS ACIDOPHILUS, BACILLUS [Concomitant]
  17. DIFLUCAN [Concomitant]
  18. ALOSENN (TARAXACUM OFFICINALE, ACHILLEA, SENNA LEAF, RUBIA ROOT TINCTU [Concomitant]
  19. METHYCOBAL (MECOBALAMIN) [Concomitant]
  20. NEUPOGEN [Concomitant]
  21. GABAPENTIN [Concomitant]
  22. GASMOTIN (MOSAPRIDE CITRATE) [Concomitant]
  23. URSO 250 [Concomitant]
  24. ALDACTONE [Concomitant]
  25. PHELLOBERIN A (CLIOQUINOL, BERBERINE HYDROCHLORIDE, CARMELLOSE SODIUM) [Concomitant]
  26. ENALAPRIL MALEATE [Concomitant]

REACTIONS (21)
  - MULTIPLE MYELOMA [None]
  - ANAEMIA [None]
  - RENAL IMPAIRMENT [None]
  - INFLUENZA [None]
  - PLEURAL EFFUSION [None]
  - IMMUNODEFICIENCY [None]
  - LEUKOPENIA [None]
  - UPPER RESPIRATORY TRACT INFLAMMATION [None]
  - NEOPLASM MALIGNANT [None]
  - HYPOAESTHESIA [None]
  - HYPERCALCAEMIA [None]
  - ASCITES [None]
  - PHARYNGITIS [None]
  - THROMBOCYTOPENIA [None]
  - INFECTION [None]
  - HAEMORRHOIDS [None]
  - GASTRITIS [None]
  - BLOOD ALKALINE PHOSPHATASE INCREASED [None]
  - CHOLECYSTITIS CHRONIC [None]
  - BLOOD CREATININE INCREASED [None]
  - GENERALISED OEDEMA [None]
